FAERS Safety Report 5318749-5 (Version None)
Quarter: 2007Q2

REPORT INFORMATION
  Report Type: 
  Country: None (occurrence: None)
  Receive Date: 20070503
  Receipt Date: 20070503
  Transmission Date: 20071010
  Serious: No
  Sender: FDA-Public Use
  Company Number: None

PATIENT
  Sex: Female
  Weight: 68.0396 kg

DRUGS (1)
  1. LUNESTA [Suspect]
     Indication: INSOMNIA
     Dosage: 15 QHS ORAL
     Route: 048
     Dates: start: 20061204, end: 20070111

REACTIONS (2)
  - ABNORMAL SLEEP-RELATED EVENT [None]
  - SLEEP WALKING [None]
